FAERS Safety Report 6987181 (Version 5)
Quarter: 2014Q1

REPORT INFORMATION
  Report Type: Spontaneous
  Country: US (occurrence: US)
  Receive Date: 20090505
  Receipt Date: 20140326
  Transmission Date: 20141002
  Serious: Yes (Other)
  Sender: FDA-Public Use
  Company Number: US-ALEXION-A200900273

PATIENT
  Sex: Male

DRUGS (17)
  1. SOLIRIS [Suspect]
     Indication: PAROXYSMAL NOCTURNAL HAEMOGLOBINURIA
     Dosage: 900 MG, Q2WK
     Route: 042
     Dates: start: 20080116
  2. SOLIRIS [Suspect]
     Dosage: 600 MG, QWK X4
     Route: 042
     Dates: start: 20071219, end: 20080109
  3. PREDNISONE [Concomitant]
     Dosage: 5 MG, QD
  4. ZOCOR [Concomitant]
     Dosage: 10 MG, QD
  5. FOLIC ACID [Concomitant]
     Dosage: 1 MG, QD
  6. FLOMAX                             /00889901/ [Concomitant]
     Dosage: .4 MG, QD
  7. COREG [Concomitant]
     Dosage: 25 MG, BID
  8. ALDACTONE                          /00006201/ [Concomitant]
     Dosage: 12.5 MG, QOD
  9. LANOXIN [Concomitant]
     Dosage: .125 MG, 5 DAY/WK
  10. NEXIUM                             /01479302/ [Concomitant]
     Dosage: 40 MG, BID
  11. LASIX                              /00032601/ [Concomitant]
     Dosage: 40 MG, QOD
  12. ALLOPURINOL [Concomitant]
     Dosage: 100 MG, QD
  13. PROSCAR [Concomitant]
     Dosage: 5 MG, QD
  14. ALTACE [Concomitant]
     Dosage: 2.5 MG, QD
  15. RYTHMOL                            /00546301/ [Concomitant]
     Dosage: 150 MG, TID
  16. COUMADIN                           /00014802/ [Concomitant]
     Dosage: 7.5 MG MWF/WEEK, UNK
  17. COUMADIN                           /00014802/ [Concomitant]
     Dosage: 5 MG FOUR DAYS/WEEK, UNK

REACTIONS (6)
  - Arteritis [Not Recovered/Not Resolved]
  - Aortic dissection [Unknown]
  - Thrombosis [Not Recovered/Not Resolved]
  - Gait disturbance [Not Recovered/Not Resolved]
  - Arthritis [Not Recovered/Not Resolved]
  - Dyspnoea [Unknown]
